FAERS Safety Report 24293027 (Version 1)
Quarter: 2024Q3

REPORT INFORMATION
  Report Type: Spontaneous
  Country: US (occurrence: None)
  Receive Date: 20240906
  Receipt Date: 20240906
  Transmission Date: 20241016
  Serious: No
  Sender: DOMPE FARMACEUTICI
  Company Number: US-FARMAPROD-202311-3363

PATIENT
  Sex: Female

DRUGS (9)
  1. OXERVATE [Suspect]
     Active Substance: CENEGERMIN-BKBJ
     Indication: Neurotrophic keratopathy
     Route: 047
     Dates: start: 20231031
  2. OXERVATE [Suspect]
     Active Substance: CENEGERMIN-BKBJ
  3. XARELTO [Concomitant]
     Active Substance: RIVAROXABAN
  4. LANOXIN [Concomitant]
     Active Substance: DIGOXIN
  5. WARFARIN SODIUM [Concomitant]
     Active Substance: WARFARIN SODIUM
  6. CALCIUM [Concomitant]
     Active Substance: CALCIUM
  7. CYANOCOBALAMIN [Concomitant]
     Active Substance: CYANOCOBALAMIN
  8. OMEPRAZOLE [Concomitant]
     Active Substance: OMEPRAZOLE
  9. SOLIFENACIN SUCCINATE [Concomitant]
     Active Substance: SOLIFENACIN SUCCINATE

REACTIONS (6)
  - Product use complaint [Unknown]
  - Essential tremor [Unknown]
  - Ocular discomfort [Unknown]
  - Eye irritation [Unknown]
  - Asthenopia [Unknown]
  - Product dose omission issue [Unknown]
